FAERS Safety Report 6821069-0 (Version None)
Quarter: 2010Q3

REPORT INFORMATION
  Report Type: 
  Country: None (occurrence: None)
  Receive Date: 20100707
  Receipt Date: 20080102
  Transmission Date: 20110219
  Serious: No
  Sender: FDA-Public Use
  Company Number: US-PFIZER INC-2008000733

PATIENT
  Sex: Male

DRUGS (5)
  1. ZOLOFT [Suspect]
  2. MUSCLE RELAXANTS [Suspect]
     Indication: INJURY
  3. LITHIUM CARBONATE [Concomitant]
  4. PROLIXIN [Concomitant]
  5. COGENTIN [Concomitant]

REACTIONS (4)
  - DEPRESSION [None]
  - INJURY [None]
  - SOCIAL PHOBIA [None]
  - TESTIS DISCOMFORT [None]
